FAERS Safety Report 13227964 (Version 1)
Quarter: 2017Q1

REPORT INFORMATION
  Report Type: Report from Study
  Country: US (occurrence: US)
  Receive Date: 20170213
  Receipt Date: 20170213
  Transmission Date: 20170428
  Serious: Yes (Hospitalization)
  Sender: FDA-Public Use
  Company Number: US-ACTELION-A-US2015-126390

PATIENT
  Age: 55 Year
  Sex: Female

DRUGS (5)
  1. TRACLEER [Suspect]
     Active Substance: BOSENTAN
     Indication: PULMONARY ARTERIAL HYPERTENSION
     Dosage: 125 MG, BID
     Route: 048
     Dates: start: 20080211
  2. LASIX [Concomitant]
     Active Substance: FUROSEMIDE
  3. BUTRANS [Suspect]
     Active Substance: BUPRENORPHINE
     Indication: PRODUCT USED FOR UNKNOWN INDICATION
     Route: 065
  4. TREPROSTINIL DIOLAMIN [Concomitant]
     Active Substance: TREPROSTINIL DIOLAMINE
  5. LISINOPRIL. [Concomitant]
     Active Substance: LISINOPRIL

REACTIONS (14)
  - Respiratory disorder [Unknown]
  - Dyspnoea [Unknown]
  - Oral fungal infection [Unknown]
  - Drug hypersensitivity [Unknown]
  - Weight increased [Unknown]
  - Fall [Unknown]
  - Productive cough [Unknown]
  - Pericardial effusion [Unknown]
  - Sinusitis [Unknown]
  - Dizziness [Unknown]
  - Vertigo [Unknown]
  - Pruritus [Unknown]
  - Rash [Unknown]
  - Fluid retention [Unknown]

NARRATIVE: CASE EVENT DATE: 20160519
